FAERS Safety Report 11243327 (Version 1)
Quarter: 2015Q3

REPORT INFORMATION
  Report Type: Spontaneous
  Country: CN (occurrence: CN)
  Receive Date: 20150707
  Receipt Date: 20150707
  Transmission Date: 20151125
  Serious: Yes (Other)
  Sender: FDA-Public Use
  Company Number: CN-PFIZER INC-2015224332

PATIENT
  Age: 88 Year
  Sex: Female
  Weight: 65 kg

DRUGS (8)
  1. MENATETRENONE [Suspect]
     Active Substance: MENATETRENONE
     Indication: BONE DENSITY DECREASED
     Dosage: 15 MG, 3X/DAY
     Route: 048
     Dates: start: 20141215, end: 20141217
  2. MEPEM [Suspect]
     Active Substance: MEROPENEM
     Indication: INFECTION
     Dosage: 0.5 G, 3X/DAY
     Route: 042
     Dates: start: 20141211, end: 20141219
  3. ALPRAZOLAM. [Concomitant]
     Active Substance: ALPRAZOLAM
     Indication: INSOMNIA
     Dosage: 0.2 MG, 1X/DAY
     Route: 048
     Dates: start: 20141215, end: 20141224
  4. CELEBREX [Suspect]
     Active Substance: CELECOXIB
     Indication: ANALGESIC THERAPY
     Dosage: 200 MG, 1X/DAY
     Route: 048
     Dates: start: 20141213, end: 20141217
  5. PARIET [Suspect]
     Active Substance: RABEPRAZOLE SODIUM
     Indication: GASTRIC ULCER
     Dosage: 10 MG, 1X/DAY
     Route: 048
     Dates: start: 20141213, end: 20141217
  6. SELBEX [Suspect]
     Active Substance: TEPRENONE
     Indication: PROPHYLAXIS
     Dosage: 50 MG, 3X/DAY
     Route: 048
     Dates: start: 20141213, end: 20141217
  7. LIPITOR [Suspect]
     Active Substance: ATORVASTATIN CALCIUM
     Indication: HYPERLIPIDAEMIA
     Dosage: 20 MG, 1X/DAY
     Route: 048
     Dates: start: 20141126, end: 20141215
  8. DIGOXIN. [Concomitant]
     Active Substance: DIGOXIN
     Indication: HYPERTENSION
     Dosage: 0.125 MG, ALTERNATE DAY
     Route: 048
     Dates: start: 20141215, end: 20141224

REACTIONS (4)
  - Aspartate aminotransferase increased [Recovering/Resolving]
  - Blood creatine phosphokinase increased [Recovering/Resolving]
  - White blood cell count decreased [Recovering/Resolving]
  - Alanine aminotransferase increased [Recovering/Resolving]

NARRATIVE: CASE EVENT DATE: 20141214
